FAERS Safety Report 7958108-X (Version None)
Quarter: 2011Q4

REPORT INFORMATION
  Report Type: 
  Country: None (occurrence: None)
  Receive Date: 20111205
  Receipt Date: 20111125
  Transmission Date: 20120403
  Serious: Yes (Other)
  Sender: FDA-Public Use
  Company Number: GB-PERRIGO-11GB010286

PATIENT
  Sex: Male

DRUGS (2)
  1. IBUPROFEN [Suspect]
     Indication: TONSILLITIS
     Dosage: 2 DF, UNK
     Route: 065
     Dates: start: 20110401
  2. PHENOXYMETHYL PENICILLIN [Suspect]
     Indication: TONSILLITIS
     Dosage: 250 MG, UNK
     Route: 065

REACTIONS (10)
  - TUNNEL VISION [None]
  - DISTURBANCE IN ATTENTION [None]
  - MUSCULAR WEAKNESS [None]
  - FEELING ABNORMAL [None]
  - HYPERCHLORHYDRIA [None]
  - HEART RATE INCREASED [None]
  - CONFUSIONAL STATE [None]
  - NAUSEA [None]
  - SENSORY DISTURBANCE [None]
  - MUSCULOSKELETAL DISCOMFORT [None]
